FAERS Safety Report 20199446 (Version 1)
Quarter: 2021Q4

REPORT INFORMATION
  Report Type: Spontaneous
  Country: US (occurrence: US)
  Receive Date: 20211217
  Receipt Date: 20211217
  Transmission Date: 20220303
  Serious: No
  Sender: FDA-Public Use
  Company Number: US-PACIRA-2021000227

PATIENT
  Age: 55 Year
  Sex: Male
  Weight: 104 kg

DRUGS (4)
  1. EXPAREL [Suspect]
     Active Substance: BUPIVACAINE
     Dosage: 20ML OF EXPAREL ADMIXED WITH 30 ML OF 0.5% BUPIVACAINE HCL AS A SUBCUTANEOUS ADMINISTRATION
     Route: 058
  2. EXPAREL [Suspect]
     Active Substance: BUPIVACAINE
     Dosage: 20ML OF EXPAREL AND 30 ML OF 0.25% BUPIVACAINE AS TAP BLOCK
     Route: 050
  3. BUPIVACAINE HYDROCHLORIDE [Suspect]
     Active Substance: BUPIVACAINE HYDROCHLORIDE
     Dosage: 30 ML OF 0.5% BUPIVACAINE AS WOUND INFILTRATION WITH 20 ML OF EXPAREL
     Route: 050
  4. BUPIVACAINE HYDROCHLORIDE [Suspect]
     Active Substance: BUPIVACAINE HYDROCHLORIDE
     Dosage: TAP BLOCK WITH 30 ML OF 0.25% BUPIVACAINE AND 20 ML OF EXPAREL
     Route: 050

REACTIONS (4)
  - Accidental overdose [Unknown]
  - No adverse event [Unknown]
  - Tremor [Recovered/Resolved]
  - Tachycardia [Recovered/Resolved]
